FAERS Safety Report 5736491-3 (Version None)
Quarter: 2008Q2

REPORT INFORMATION
  Report Type: 
  Country: None (occurrence: None)
  Receive Date: 20080509
  Receipt Date: 20080509
  Transmission Date: 20081010
  Serious: Yes (Hospitalization)
  Sender: FDA-Public Use
  Company Number: None

PATIENT
  Age: 68 Year
  Sex: Female
  Weight: 94.3482 kg

DRUGS (1)
  1. DIGOXIN [Suspect]
     Indication: VENTRICULAR EXTRASYSTOLES
     Dosage: .25MG 1 PER DAY
     Dates: start: 20080207, end: 20080505

REACTIONS (7)
  - CHEST PAIN [None]
  - ELECTROCARDIOGRAM ABNORMAL [None]
  - FATIGUE [None]
  - PHARMACEUTICAL PRODUCT COMPLAINT [None]
  - RENAL PAIN [None]
  - TOOTHACHE [None]
  - VENTRICULAR EXTRASYSTOLES [None]
